FAERS Safety Report 20134973 (Version 2)
Quarter: 2021Q4

REPORT INFORMATION
  Report Type: Report from Study
  Country: US (occurrence: US)
  Receive Date: 20211201
  Receipt Date: 20211202
  Transmission Date: 20220303
  Serious: No
  Sender: FDA-Public Use
  Company Number: US-NOVARTISTESTPH-NVSC2021US273807

PATIENT
  Age: 19 Year
  Sex: Male
  Weight: 136.05 kg

DRUGS (3)
  1. COSENTYX [Suspect]
     Active Substance: SECUKINUMAB
     Indication: Psoriasis
     Dosage: 150 MG, UNKNOWN, LOADING DOSE
     Route: 058
     Dates: start: 20210807
  2. COSENTYX [Suspect]
     Active Substance: SECUKINUMAB
     Dosage: 150 MG, QMO
     Route: 058
  3. COSENTYX [Suspect]
     Active Substance: SECUKINUMAB
     Dosage: 150 MG/KG, QMO
     Route: 058
     Dates: start: 20210807, end: 20211129

REACTIONS (3)
  - Skin exfoliation [Not Recovered/Not Resolved]
  - Pruritus [Not Recovered/Not Resolved]
  - Condition aggravated [Unknown]

NARRATIVE: CASE EVENT DATE: 20211018
